FAERS Safety Report 6611047-9 (Version None)
Quarter: 2010Q1

REPORT INFORMATION
  Report Type: 
  Country: None (occurrence: None)
  Receive Date: 20100303
  Receipt Date: 20100217
  Transmission Date: 20100710
  Serious: Yes (Other)
  Sender: FDA-Public Use
  Company Number: NL-RANBAXY-2010RR-31337

PATIENT
  Age: 89 Year
  Sex: Female

DRUGS (3)
  1. RANITIDINE [Suspect]
     Indication: DRUG USE FOR UNKNOWN INDICATION
  2. ASPIRIN [Suspect]
  3. MADOPAR [Concomitant]

REACTIONS (7)
  - ANHIDROSIS [None]
  - ASTHENIA [None]
  - CIRCULATORY COLLAPSE [None]
  - DIZZINESS [None]
  - HYPOTONIA [None]
  - PRESYNCOPE [None]
  - VOMITING [None]
